FAERS Safety Report 19085530 (Version 1)
Quarter: 2021Q2

REPORT INFORMATION
  Report Type: Spontaneous
  Country: US (occurrence: US)
  Receive Date: 20210401
  Receipt Date: 20210401
  Transmission Date: 20210717
  Serious: Yes (Hospitalization)
  Sender: FDA-Public Use
  Company Number: US-FRESENIUS MEDICAL CARE RENAL THERAPIES GROUP-FMC-2103-000406

PATIENT
  Age: 60 Year
  Sex: Male
  Weight: 102 kg

DRUGS (14)
  1. CLONIDINE. [Concomitant]
     Active Substance: CLONIDINE
  2. PRAVASTATIN. [Concomitant]
     Active Substance: PRAVASTATIN
  3. DELFLEX WITH DEXTROSE 1.5% LOW MAGNESIUM LOW CALCIUM [Suspect]
     Active Substance: CALCIUM CHLORIDE\DEXTROSE\MAGNESIUM CHLORIDE\SODIUM CHLORIDE\SODIUM LACTATE
     Indication: END STAGE RENAL DISEASE
     Dosage: FOR 5 CYCLES WITH TFV=10,010ML
     Route: 033
     Dates: start: 20181217
  4. DELFLEX WITH DEXTROSE 4.25% LOW MAGNESIUM LOW CALCIUM [Suspect]
     Active Substance: CALCIUM CHLORIDE\DEXTROSE\MAGNESIUM CHLORIDE\SODIUM CHLORIDE\SODIUM LACTATE
     Indication: END STAGE RENAL DISEASE
     Dosage: FOR 5 CYCLES WITH TFV=10,010ML
     Route: 033
     Dates: start: 20181217
  5. LACTULOSE. [Concomitant]
     Active Substance: LACTULOSE
  6. FLOMAX [Concomitant]
     Active Substance: TAMSULOSIN HYDROCHLORIDE
  7. ALLOPURINOL. [Concomitant]
     Active Substance: ALLOPURINOL
  8. CALCITRIOL. [Concomitant]
     Active Substance: CALCITRIOL
  9. PREDNISONE. [Concomitant]
     Active Substance: PREDNISONE
  10. DELFLEX WITH DEXTROSE 2.5% LOW MAGNESIUM LOW CALCIUM [Suspect]
     Active Substance: CALCIUM CHLORIDE\DEXTROSE\MAGNESIUM CHLORIDE\SODIUM CHLORIDE\SODIUM LACTATE
     Indication: END STAGE RENAL DISEASE
     Dosage: FOR 5 CYCLES WITH TFV=10,010ML
     Route: 033
     Dates: start: 20181217
  11. CLONAZEPAM. [Concomitant]
     Active Substance: CLONAZEPAM
  12. VITAMIN D2 [Concomitant]
     Active Substance: ERGOCALCIFEROL
  13. WELLBUTRIN [Concomitant]
     Active Substance: BUPROPION HYDROCHLORIDE
  14. RENVELA [Concomitant]
     Active Substance: SEVELAMER CARBONATE

REACTIONS (1)
  - Fluid overload [Unknown]
